FAERS Safety Report 8993120 (Version 1)
Quarter: 2013Q1

REPORT INFORMATION
  Report Type: Report from Study
  Country: US (occurrence: US)
  Receive Date: 20130102
  Receipt Date: 20130102
  Transmission Date: 20140127
  Serious: Yes (Hospitalization)
  Sender: FDA-Public Use
  Company Number: US-ROCHE-1172229

PATIENT
  Age: 67 Year
  Sex: Female
  Weight: 38.8 kg

DRUGS (4)
  1. TRASTUZUMAB [Suspect]
     Indication: BREAST CANCER
     Dosage: OVER 90 MINUTES ON DAY 1 CYCLE 1 ONLY
     Route: 042
     Dates: start: 20120918
  2. TRASTUZUMAB [Suspect]
     Dosage: OVER 30-60 MINUTES ON DAY 1 FOR CYCLES 2-6
     Route: 042
     Dates: start: 20120918
  3. DOCETAXEL [Suspect]
     Indication: BREAST CANCER
     Dosage: OVER 60 MINUTES ON DAY 1 FOR 6 CYCLES
     Route: 042
     Dates: start: 20120918
  4. CYCLOPHOSPHAMIDE [Suspect]
     Indication: BREAST CANCER
     Dosage: OVER 30 MINUTES ON DAY 1 FOR 6 CYCLES
     Route: 042
     Dates: start: 20120918

REACTIONS (1)
  - Syncope [Not Recovered/Not Resolved]
